FAERS Safety Report 6771036-0 (Version None)
Quarter: 2010Q2

REPORT INFORMATION
  Report Type: 
  Country: None (occurrence: None)
  Receive Date: 20100616
  Receipt Date: 20100611
  Transmission Date: 20101027
  Serious: Yes (Life-Threatening)
  Sender: FDA-Public Use
  Company Number: GB-TEVA-237458ISR

PATIENT
  Sex: Female
  Weight: 63.5 kg

DRUGS (2)
  1. VENLAFAXINE [Suspect]
     Indication: ANXIETY
     Route: 048
     Dates: start: 20100101, end: 20100401
  2. VENLAFAXINE [Suspect]
     Indication: EATING DISORDER

REACTIONS (2)
  - AMNESIA [None]
  - SOMNAMBULISM [None]
